FAERS Safety Report 12328517 (Version 1)
Quarter: 2016Q2

REPORT INFORMATION
  Report Type: Spontaneous
  Country: US (occurrence: US)
  Receive Date: 20160503
  Receipt Date: 20160503
  Transmission Date: 20160815
  Serious: No
  Sender: FDA-Public Use
  Company Number: US-BEH-2015048907

PATIENT
  Age: 58 Year
  Sex: Female
  Weight: 54 kg

DRUGS (19)
  1. ALLEGRA [Concomitant]
     Active Substance: FEXOFENADINE HYDROCHLORIDE
  2. COMBIVENT [Concomitant]
     Active Substance: ALBUTEROL SULFATE\IPRATROPIUM BROMIDE
  3. LIDOCAINE/PRILOCAINE [Concomitant]
  4. HYOSCYAMINE SULF [Concomitant]
  5. HIZENTRA [Suspect]
     Active Substance: HUMAN IMMUNOGLOBULIN G
     Indication: IMMUNODEFICIENCY COMMON VARIABLE
     Dosage: TOTAL OF 54 INFUSIONS; ROTATES SITES
     Route: 058
  6. ACETAMINOPHEN. [Concomitant]
     Active Substance: ACETAMINOPHEN
  7. SINGULAIR [Concomitant]
     Active Substance: MONTELUKAST SODIUM
  8. OMEPRAZOLE DR [Concomitant]
     Active Substance: OMEPRAZOLE
  9. HIZENTRA [Suspect]
     Active Substance: HUMAN IMMUNOGLOBULIN G
     Route: 058
  10. VITAMIN E [Concomitant]
     Active Substance: .ALPHA.-TOCOPHEROL
  11. EPIPEN [Concomitant]
     Active Substance: EPINEPHRINE
  12. LIDOCAINE. [Concomitant]
     Active Substance: LIDOCAINE
  13. ADVIL [Concomitant]
     Active Substance: IBUPROFEN
  14. DELSYM [Concomitant]
     Active Substance: DEXTROMETHORPHAN
  15. DIPHENHYDRAMINE. [Concomitant]
     Active Substance: DIPHENHYDRAMINE
  16. ADVAIR DISKUS [Concomitant]
     Active Substance: FLUTICASONE PROPIONATE\SALMETEROL XINAFOATE
  17. AYR SALINE [Concomitant]
  18. EYE WASH [Concomitant]
     Active Substance: WATER
  19. POLYETHYLENE GLYCOL [Concomitant]
     Active Substance: POLYETHYLENE GLYCOLS

REACTIONS (2)
  - Injection site mass [Unknown]
  - Injection site pain [Unknown]

NARRATIVE: CASE EVENT DATE: 20150205
